FAERS Safety Report 5639587-X (Version None)
Quarter: 2008Q1

REPORT INFORMATION
  Report Type: 
  Country: None (occurrence: None)
  Receive Date: 20080131
  Receipt Date: 20071204
  Transmission Date: 20080703
  Serious: Yes (Hospitalization)
  Sender: FDA-Public Use
  Company Number: 163-21880-07110827

PATIENT
  Age: 63 Year
  Sex: Female

DRUGS (6)
  1. REVLIMID [Suspect]
     Indication: MULTIPLE MYELOMA
     Dosage: 15 MG, 1 IN 1 D, ORAL
     Route: 048
     Dates: start: 20061108, end: 20071105
  2. REVLIMID [Suspect]
     Indication: MULTIPLE MYELOMA
     Dosage: 15 MG, 1 IN 1 D, ORAL
     Route: 048
     Dates: start: 20071205
  3. ABT ( ANTIBIOTICS) [Concomitant]
  4. EPOGEN (EPOGENTIN ALFA) [Concomitant]
  5. PREDNISONE TAB [Concomitant]
  6. ATIVAN [Concomitant]

REACTIONS (5)
  - ABDOMINAL ABSCESS [None]
  - FALL [None]
  - HALLUCINATION [None]
  - HIP FRACTURE [None]
  - WHITE BLOOD CELL COUNT DECREASED [None]
